FAERS Safety Report 7021582-X (Version None)
Quarter: 2010Q3

REPORT INFORMATION
  Report Type: 
  Country: None (occurrence: None)
  Receive Date: 20100928
  Receipt Date: 20100914
  Transmission Date: 20110219
  Serious: Yes (Hospitalization, Other)
  Sender: FDA-Public Use
  Company Number: JPI-P-012272

PATIENT
  Age: 50 Year
  Sex: Male

DRUGS (1)
  1. XYREM [Suspect]
     Indication: NARCOLEPSY
     Dosage: 4.5 GM (2.25 GM,2 IN 1 D),ORAL, 9 GN (4.5 GM, 2 IN 1 D), ORAL
     Route: 048
     Dates: start: 20060320

REACTIONS (1)
  - CEREBROVASCULAR ACCIDENT [None]
